FAERS Safety Report 21830310 (Version 1)
Quarter: 2023Q1

REPORT INFORMATION
  Report Type: Spontaneous
  Country: JP (occurrence: JP)
  Receive Date: 20230106
  Receipt Date: 20230106
  Transmission Date: 20230418
  Serious: Yes (Other)
  Sender: FDA-Public Use
  Company Number: JP-AMNEAL PHARMACEUTICALS-2022-AMRX-04255

PATIENT
  Age: 51 Year
  Sex: Female

DRUGS (1)
  1. PREDNISOLONE SODIUM PHOSPHATE [Suspect]
     Active Substance: PREDNISOLONE SODIUM PHOSPHATE
     Indication: Autoimmune haemolytic anaemia
     Dosage: 1 MG/KG DAILY AND THE DOSAGE WAS TAPERED GRADUALLY AND FINALLY MAINTAINED AT 10 MG DAILY
     Route: 048

REACTIONS (2)
  - Lymphoproliferative disorder [Recovered/Resolved]
  - Secondary immunodeficiency [Recovered/Resolved]
